FAERS Safety Report 9230180 (Version 1)
Quarter: 2013Q2

REPORT INFORMATION
  Report Type: Other
  Country: FR (occurrence: FR)
  Receive Date: 20130415
  Receipt Date: 20130415
  Transmission Date: 20140414
  Serious: Yes (Hospitalization, Other)
  Sender: FDA-Public Use
  Company Number: FR-EISAI INC-E7273-00379-SPO-FR

PATIENT
  Sex: Male

DRUGS (1)
  1. TARGRETIN CAPSULES [Suspect]
     Indication: PRODUCT USED FOR UNKNOWN INDICATION
     Dosage: UNKNOWN
     Route: 048
     Dates: start: 20030106, end: 20080215

REACTIONS (3)
  - Glomerulonephritis [Not Recovered/Not Resolved]
  - Renal transplant [Unknown]
  - Dyslipidaemia [Unknown]
